FAERS Safety Report 20610766 (Version 4)
Quarter: 2023Q1

REPORT INFORMATION
  Report Type: Spontaneous
  Country: JP (occurrence: JP)
  Receive Date: 20220318
  Receipt Date: 20230330
  Transmission Date: 20230417
  Serious: Yes (Other)
  Sender: FDA-Public Use
  Company Number: JP-ASTELLAS-2022JP004488

PATIENT
  Age: 79 Year
  Sex: Male

DRUGS (1)
  1. PADCEV [Suspect]
     Active Substance: ENFORTUMAB VEDOTIN-EJFV
     Indication: Transitional cell carcinoma
     Route: 041
     Dates: start: 20220118, end: 20220201

REACTIONS (7)
  - Tumour lysis syndrome [Unknown]
  - Thrombophlebitis migrans [Unknown]
  - Renal impairment [Unknown]
  - Blood uric acid increased [Unknown]
  - Blood lactate dehydrogenase increased [Unknown]
  - Hyperglycaemia [Unknown]
  - Diarrhoea [Unknown]
